FAERS Safety Report 6746163-4 (Version None)
Quarter: 2010Q2

REPORT INFORMATION
  Report Type: 
  Country: None (occurrence: None)
  Receive Date: 20100528
  Receipt Date: 20091012
  Transmission Date: 20101027
  Serious: No
  Sender: FDA-Public Use
  Company Number: US-ASTRAZENECA-2009SE19562

PATIENT
  Age: 79 Year
  Sex: Female
  Weight: 69.9 kg

DRUGS (2)
  1. PRILOSEC [Suspect]
     Dates: start: 20010101, end: 20050101
  2. PRILOSEC [Suspect]
     Route: 048
     Dates: start: 20050101

REACTIONS (3)
  - ABDOMINAL DISCOMFORT [None]
  - ABDOMINAL PAIN UPPER [None]
  - HERNIA HIATUS REPAIR [None]
